FAERS Safety Report 23350016 (Version 1)
Quarter: 2023Q4

REPORT INFORMATION
  Report Type: Spontaneous
  Country: US (occurrence: US)
  Receive Date: 20231229
  Receipt Date: 20231229
  Transmission Date: 20240110
  Serious: No
  Sender: FDA-Public Use
  Company Number: US-ASTELLAS-2023US027101

PATIENT
  Sex: Male

DRUGS (2)
  1. PADCEV [Suspect]
     Active Substance: ENFORTUMAB VEDOTIN-EJFV
     Indication: Product used for unknown indication
     Dosage: UNK UNK, UNKNOWN FREQ.
     Route: 042
  2. PADCEV [Suspect]
     Active Substance: ENFORTUMAB VEDOTIN-EJFV
     Dosage: UNK UNK, UNKNOWN FREQ.
     Route: 042

REACTIONS (7)
  - Infusion site reaction [Recovering/Resolving]
  - Infusion site extravasation [Recovering/Resolving]
  - Skin exfoliation [Recovering/Resolving]
  - Scab [Recovering/Resolving]
  - Skin injury [Recovering/Resolving]
  - Erythema [Recovering/Resolving]
  - Poor venous access [Unknown]
